FAERS Safety Report 25504681 (Version 5)
Quarter: 2025Q4

REPORT INFORMATION
  Report Type: Spontaneous
  Country: US (occurrence: US)
  Receive Date: 20250702
  Receipt Date: 20251009
  Transmission Date: 20260117
  Serious: No
  Sender: TRAVERE THERAPEUTICS
  Company Number: US-TRAVERE-2025TVT00887

PATIENT
  Age: 31 Year
  Sex: Female

DRUGS (2)
  1. FILSPARI [Suspect]
     Active Substance: SPARSENTAN
     Indication: IgA nephropathy
     Route: 048
     Dates: start: 20250606
  2. FILSPARI [Suspect]
     Active Substance: SPARSENTAN
     Route: 048

REACTIONS (14)
  - Chromaturia [Unknown]
  - Nausea [Recovering/Resolving]
  - Hypotension [Recovering/Resolving]
  - Dizziness [None]
  - Feeling abnormal [Recovering/Resolving]
  - Musculoskeletal chest pain [Recovered/Resolved]
  - Decreased appetite [Unknown]
  - Back pain [Unknown]
  - Renal pain [Unknown]
  - Euphoric mood [Unknown]
  - Blood glucose decreased [Unknown]
  - Dehydration [Unknown]
  - Blood alkaline phosphatase increased [Unknown]
  - Malaise [Unknown]

NARRATIVE: CASE EVENT DATE: 20250606
